FAERS Safety Report 23604842 (Version 1)
Quarter: 2024Q1

REPORT INFORMATION
  Report Type: Report from Study
  Country: IQ (occurrence: IQ)
  Receive Date: 20240307
  Receipt Date: 20240307
  Transmission Date: 20240410
  Serious: Yes (Other)
  Sender: FDA-Public Use
  Company Number: IQ-BAYER-2024A033069

PATIENT
  Age: 10 Year
  Sex: Male

DRUGS (1)
  1. EYLEA [Suspect]
     Active Substance: AFLIBERCEPT
     Indication: Retinopathy
     Dosage: 5TH,INJUCT,MONTHLY; SOLUTION FOR INJECTION; 40 MG/ML
     Route: 031
     Dates: start: 20231018

REACTIONS (1)
  - Drug effective for unapproved indication [Recovered/Resolved]
